FAERS Safety Report 12154734 (Version 2)
Quarter: 2016Q2

REPORT INFORMATION
  Report Type: Spontaneous
  Country: GB (occurrence: GB)
  Receive Date: 20160307
  Receipt Date: 20160503
  Transmission Date: 20160815
  Serious: Yes (Other)
  Sender: FDA-Public Use
  Company Number: GB-WATSON-2016-04381

PATIENT
  Age: 41 Year
  Sex: Male
  Weight: 119.7 kg

DRUGS (5)
  1. SERTRALINE [Suspect]
     Active Substance: SERTRALINE HYDROCHLORIDE
     Indication: ANXIETY
     Dosage: 100 MG, DAILY
     Route: 048
     Dates: start: 20121102
  2. CLOZARIL [Suspect]
     Active Substance: CLOZAPINE
     Dosage: 500 MG, DAILY
     Route: 048
     Dates: start: 200703, end: 201202
  3. CLOZARIL [Suspect]
     Active Substance: CLOZAPINE
     Indication: SCHIZOPHRENIA
     Dosage: UNK
     Route: 048
     Dates: start: 20010701
  4. BISOPROLOL [Concomitant]
     Active Substance: BISOPROLOL
     Indication: PANIC ATTACK
     Dosage: 5 MG, BID
     Route: 048
     Dates: start: 20120609
  5. CLOZARIL [Suspect]
     Active Substance: CLOZAPINE
     Indication: SCHIZOPHRENIA
     Dosage: 300 MG, DAILY; 100 IN MORNING AND 200 MG IN NIGHT
     Route: 048
     Dates: start: 20120609

REACTIONS (2)
  - Electrocardiogram QT prolonged [Unknown]
  - Conduction disorder [Unknown]

NARRATIVE: CASE EVENT DATE: 20160118
